FAERS Safety Report 4302664-X (Version None)
Quarter: 2004Q1

REPORT INFORMATION
  Report Type: 
  Country: None (occurrence: None)
  Receive Date: 20040220
  Receipt Date: 20040209
  Transmission Date: 20041129
  Serious: No
  Sender: FDA-Public Use
  Company Number: A122464

PATIENT
  Age: 54 Year
  Sex: Female
  Weight: 56.6996 kg

DRUGS (6)
  1. CETIRIZINE HCL [Suspect]
     Indication: MULTIPLE ALLERGIES
     Dosage: 10 MG (DAILY), ORAL
     Route: 048
     Dates: start: 19990101, end: 20010928
  2. DIGOXIN [Concomitant]
  3. ESTRADIOL [Concomitant]
  4. MEDROXYPROGESTERONE [Concomitant]
  5. XALATAN [Concomitant]
  6. MOVE FREE (GLUCOSAMINE, CHONDROITIN) [Concomitant]

REACTIONS (5)
  - ANGIONEUROTIC OEDEMA [None]
  - INJURY [None]
  - INTRAOCULAR PRESSURE INCREASED [None]
  - OCULOGYRATION [None]
  - POST PROCEDURAL COMPLICATION [None]
